FAERS Safety Report 23662687 (Version 2)
Quarter: 2024Q1

REPORT INFORMATION
  Report Type: Spontaneous
  Country: US (occurrence: US)
  Receive Date: 20240322
  Receipt Date: 20240325
  Transmission Date: 20240410
  Serious: Yes (Death, Hospitalization, Other)
  Sender: FDA-Public Use
  Company Number: US-INCYTE CORPORATION-2024IN003091

PATIENT

DRUGS (6)
  1. JAKAFI [Suspect]
     Active Substance: RUXOLITINIB
     Indication: Neoplasm
     Dosage: 5 MILLIGRAM, BID
     Route: 048
     Dates: start: 20230215
  2. AXATILIMAB [Suspect]
     Active Substance: AXATILIMAB
     Indication: Chronic graft versus host disease in lung
     Dosage: 9 MILLIGRAM, EVERY 2 WEEKS
     Route: 042
     Dates: start: 20231215, end: 20240220
  3. BELUMOSUDIL [Concomitant]
     Active Substance: BELUMOSUDIL
     Indication: Chronic graft versus host disease
     Dosage: 200 MILLIGRAM, BID
     Route: 048
     Dates: start: 20240103
  4. MEGESTROL [Concomitant]
     Active Substance: MEGESTROL
     Indication: Acute lymphocytic leukaemia
     Dosage: 200 MILLIGRAM, QD
     Route: 048
     Dates: start: 20220911
  5. FUNGIZONE [Concomitant]
     Active Substance: AMPHOTERICIN B
     Indication: Immunodeficiency
     Dosage: 4 MILLILITER, BID
     Route: 048
     Dates: start: 20231214
  6. AMOXICILLIN [Concomitant]
     Active Substance: AMOXICILLIN
     Indication: Immunodeficiency
     Dosage: 250 MILLIGRAM, BID
     Route: 048
     Dates: start: 20230215

REACTIONS (3)
  - Respiratory failure [Fatal]
  - Obliterative bronchiolitis [Not Recovered/Not Resolved]
  - Off label use [Unknown]

NARRATIVE: CASE EVENT DATE: 20231215
